FAERS Safety Report 24041857 (Version 1)
Quarter: 2024Q3

REPORT INFORMATION
  Report Type: Spontaneous
  Country: US (occurrence: US)
  Receive Date: 20240702
  Receipt Date: 20240702
  Transmission Date: 20241017
  Serious: No
  Sender: MERCK
  Company Number: US-009507513-2406USA001138

PATIENT
  Sex: Female

DRUGS (1)
  1. WELIREG [Suspect]
     Active Substance: BELZUTIFAN
     Indication: Haemangioblastoma
     Dosage: UNK
     Route: 048

REACTIONS (2)
  - Heavy menstrual bleeding [Unknown]
  - Anaemia [Unknown]
